FAERS Safety Report 14169962 (Version 1)
Quarter: 2017Q4

REPORT INFORMATION
  Report Type: Spontaneous
  Country: CN (occurrence: CN)
  Receive Date: 20171108
  Receipt Date: 20171108
  Transmission Date: 20180321
  Serious: Yes (Other)
  Sender: FDA-Public Use
  Company Number: CN-ASTRAZENECA-2017SF13411

PATIENT
  Age: 12752 Day
  Sex: Female

DRUGS (3)
  1. VANCOMYCIN HYDROCHLORIDE. [Suspect]
     Active Substance: VANCOMYCIN HYDROCHLORIDE
     Indication: INFECTION
     Route: 041
     Dates: start: 20170804, end: 20170901
  2. PANIPENEM AND BETAMIPRON [Suspect]
     Active Substance: BETAMIPRON\PANIPENEM
     Indication: INFECTION
     Route: 041
     Dates: start: 20170804, end: 20170901
  3. ESOMEPRAZOLE SODIUM. [Suspect]
     Active Substance: ESOMEPRAZOLE SODIUM
     Indication: STRESS ULCER
     Route: 041
     Dates: start: 20170802, end: 20170901

REACTIONS (3)
  - Leukopenia [Recovering/Resolving]
  - Erythropenia [Recovering/Resolving]
  - Neutropenia [Recovering/Resolving]

NARRATIVE: CASE EVENT DATE: 20170901
